FAERS Safety Report 20884390 (Version 4)
Quarter: 2025Q2

REPORT INFORMATION
  Report Type: Report from Study
  Country: BR (occurrence: BR)
  Receive Date: 20220527
  Receipt Date: 20250618
  Transmission Date: 20250716
  Serious: Yes (Other)
  Sender: TAKEDA
  Company Number: BR-TAKEDA-2022TUS034940

PATIENT
  Age: 31 Year
  Sex: Male

DRUGS (2)
  1. VEDOLIZUMAB [Suspect]
     Active Substance: VEDOLIZUMAB
     Indication: Colitis ulcerative
  2. VEDOLIZUMAB [Suspect]
     Active Substance: VEDOLIZUMAB
     Dosage: 300 MILLIGRAM, Q4WEEKS

REACTIONS (4)
  - Colitis ulcerative [Unknown]
  - COVID-19 [Unknown]
  - Inappropriate schedule of product administration [Unknown]
  - Product availability issue [Unknown]

NARRATIVE: CASE EVENT DATE: 20250506
